FAERS Safety Report 9456841 (Version 1)
Quarter: 2013Q3

REPORT INFORMATION
  Report Type: Spontaneous
  Country: PL (occurrence: PL)
  Receive Date: 20130813
  Receipt Date: 20130813
  Transmission Date: 20140515
  Serious: Yes (Life-Threatening)
  Sender: FDA-Public Use
  Company Number: PL-WATSON-2013-14263

PATIENT
  Age: 62 Year
  Sex: Male

DRUGS (1)
  1. CARBOPLATIN (UNKNOWN) [Suspect]
     Indication: PRODUCT USED FOR UNKNOWN INDICATION
     Dosage: 630 MG, UNK
     Route: 042
     Dates: start: 20121112, end: 20121112

REACTIONS (5)
  - Blood pressure immeasurable [Unknown]
  - Pallor [Unknown]
  - Malaise [Unknown]
  - Back pain [Unknown]
  - Nausea [Unknown]
